FAERS Safety Report 15746580 (Version 1)
Quarter: 2018Q4

REPORT INFORMATION
  Report Type: Spontaneous
  Country: US (occurrence: US)
  Receive Date: 20181220
  Receipt Date: 20181220
  Transmission Date: 20190205
  Serious: No
  Sender: FDA-Public Use
  Company Number: US-PRINSTON PHARMACEUTICAL INC.-2018PRN00421

PATIENT
  Sex: Male

DRUGS (29)
  1. VALSARTAN. [Suspect]
     Active Substance: VALSARTAN
     Dosage: 160 MG, 1X/DAY
     Route: 048
  2. SUPER VITAMIN E [Concomitant]
  3. MAGNESIUM [Concomitant]
     Active Substance: MAGNESIUM
  4. CHLOROPHYLLIN [Concomitant]
  5. VALSARTAN. [Suspect]
     Active Substance: VALSARTAN
     Indication: HYPERTENSION
     Dosage: UNK UNK, 1X/DAY
     Route: 048
  6. VALSARTAN. [Suspect]
     Active Substance: VALSARTAN
     Dosage: 80 MG, 1X/DAY
     Route: 048
     Dates: start: 2016, end: 2017
  7. CO-Q 10 [Concomitant]
     Active Substance: UBIDECARENONE
  8. SAW PALMETTO [Concomitant]
     Active Substance: HERBALS\SAW PALMETTO
  9. OPC^S [Concomitant]
  10. SUPER SELENIUM [Concomitant]
  11. CINSULIN [Concomitant]
  12. CALCIUM CITRATE [Concomitant]
     Active Substance: CALCIUM CITRATE
  13. VALSARTAN. [Suspect]
     Active Substance: VALSARTAN
     Dosage: 160 MG, 1X/DAY
     Route: 048
     Dates: start: 201806, end: 20180716
  14. BUFFERED C [Concomitant]
  15. BILBERRY [Concomitant]
     Active Substance: BILBERRY
  16. R LIPOIC ACID [Concomitant]
  17. KYOLIC HH GARLIC EXTRACT [Concomitant]
  18. GAMMA E [Concomitant]
  19. OPTIMIZED QUERCETIN [Concomitant]
  20. LOSARTAN POTASSIUM. [Suspect]
     Active Substance: LOSARTAN POTASSIUM
     Indication: HYPERTENSION
     Dosage: UNK
     Dates: start: 201807
  21. GLUCOSAMINE [Concomitant]
     Active Substance: GLUCOSAMINE
  22. VALSARTAN. [Suspect]
     Active Substance: VALSARTAN
     Dosage: 80 MG, 1X/DAY
     Route: 048
     Dates: end: 201806
  23. ZINC. [Concomitant]
     Active Substance: ZINC
  24. RESVERATROL [Concomitant]
     Active Substance: DIETARY SUPPLEMENT\RESVERATROL
  25. BLACK ELDERBERRY [Concomitant]
  26. CHONDROITIN [Concomitant]
     Active Substance: CHONDROITIN
  27. SUPER BIOCURCUMIN [Concomitant]
  28. PYCNOGENOL [Concomitant]
     Active Substance: DIETARY SUPPLEMENT
  29. VITAMIN B COMPLEX [Concomitant]
     Active Substance: CYANOCOBALAMIN\DEXPANTHENOL\NIACINAMIDE\PYRIDOXINE HYDROCHLORIDE\RIBOFLAVIN 5^-PHOSPHATE SODIUM\THIAMINE HYDROCHLORIDE\VITAMIN B COMPLEX

REACTIONS (7)
  - Weight decreased [Recovered/Resolved]
  - Blood pressure increased [Recovering/Resolving]
  - Headache [Recovered/Resolved]
  - Glycosylated haemoglobin increased [Unknown]
  - Blood glucose increased [Unknown]
  - Weight increased [Not Recovered/Not Resolved]
  - Hyperphagia [Unknown]

NARRATIVE: CASE EVENT DATE: 2016
